FAERS Safety Report 14249690 (Version 5)
Quarter: 2020Q1

REPORT INFORMATION
  Report Type: Spontaneous
  Country: US (occurrence: US)
  Receive Date: 20171205
  Receipt Date: 20200131
  Transmission Date: 20200409
  Serious: Yes (Hospitalization)
  Sender: FDA-Public Use
  Company Number: US-ASTRAZENECA-2017SF21610

PATIENT
  Age: 71 Year
  Sex: Male
  Weight: 72.6 kg

DRUGS (20)
  1. MOVANTIK [Suspect]
     Active Substance: NALOXEGOL OXALATE
     Indication: CARDIAC DISORDER
     Dosage: 25MG/DL DAILY
     Route: 048
     Dates: start: 2017
  2. MOVANTIK [Suspect]
     Active Substance: NALOXEGOL OXALATE
     Indication: CARDIAC DISORDER
     Dosage: 25 MG TABLET, BROKEN IN HALF TO EQUAL 12.5 MG, ABOUT ONCE A WEEK
     Route: 048
  3. MOVANTIK [Suspect]
     Active Substance: NALOXEGOL OXALATE
     Indication: CONSTIPATION
     Dosage: 25MG/DL DAILY
     Route: 048
     Dates: start: 2017
  4. MOVANTIK [Suspect]
     Active Substance: NALOXEGOL OXALATE
     Indication: CONSTIPATION
     Route: 048
  5. PLAVIX [Concomitant]
     Active Substance: CLOPIDOGREL BISULFATE
  6. AMIODARONE [Concomitant]
     Active Substance: AMIODARONE
  7. MOVANTIK [Suspect]
     Active Substance: NALOXEGOL OXALATE
     Indication: CONSTIPATION
     Dosage: 25 MG TABLET, BROKEN IN HALF TO EQUAL 12.5 MG, ABOUT ONCE A WEEK
     Route: 048
  8. SENOKOT-S [Concomitant]
     Active Substance: DOCUSATE SODIUM\SENNOSIDES
  9. ELIQUIS [Concomitant]
     Active Substance: APIXABAN
  10. MOVANTIK [Suspect]
     Active Substance: NALOXEGOL OXALATE
     Indication: CARDIAC DISORDER
     Dosage: 12.5 OR 25 MG OFF AND ON EVERY OTHER DAY OR EVERY 2 TO 3 DAYS
     Route: 048
  11. MOVANTIK [Suspect]
     Active Substance: NALOXEGOL OXALATE
     Indication: CONSTIPATION
     Dosage: 12.5 OR 25 MG OFF AND ON EVERY OTHER DAY OR EVERY 2 TO 3 DAYS
     Route: 048
  12. MOVANTIK [Suspect]
     Active Substance: NALOXEGOL OXALATE
     Indication: CARDIAC DISORDER
     Route: 048
  13. MOVANTIK [Suspect]
     Active Substance: NALOXEGOL OXALATE
     Indication: CONSTIPATION
     Dosage: NOT TAKING MOVANTIK EVERY DAY, HE TOOK IT EVERY 2 WEEKS, OR MONTH AND HAVEN^T TAKEN MOVANTIK IN 3...
     Route: 048
  14. HYDROCODONE [Concomitant]
     Active Substance: HYDROCODONE
     Dosage: UP TO 3 TIMES/DAY
  15. MOVANTIK [Suspect]
     Active Substance: NALOXEGOL OXALATE
     Indication: CONSTIPATION
     Route: 048
  16. MOVANTIK [Suspect]
     Active Substance: NALOXEGOL OXALATE
     Indication: CARDIAC DISORDER
     Route: 048
  17. MOVANTIK [Suspect]
     Active Substance: NALOXEGOL OXALATE
     Indication: CARDIAC DISORDER
     Dosage: NOT TAKING MOVANTIK EVERY DAY, HE TOOK IT EVERY 2 WEEKS, OR MONTH AND HAVEN^T TAKEN MOVANTIK IN 3...
     Route: 048
  18. OPIUM. [Concomitant]
     Active Substance: OPIUM
  19. METHADONE [Concomitant]
     Active Substance: METHADONE HYDROCHLORIDE
     Indication: NERVE COMPRESSION
  20. MIRALAX [Concomitant]
     Active Substance: POLYETHYLENE GLYCOL 3350
     Dosage: IN THE MORNING WITH MOVANTIK 25 MG

REACTIONS (28)
  - Feeling abnormal [Not Recovered/Not Resolved]
  - Neck pain [Unknown]
  - Agitation [Unknown]
  - Diarrhoea [Not Recovered/Not Resolved]
  - Dizziness [Not Recovered/Not Resolved]
  - Mobility decreased [Unknown]
  - Product dose omission [Unknown]
  - Discomfort [Unknown]
  - Paraesthesia [Unknown]
  - Pain in extremity [Unknown]
  - Pain [Unknown]
  - Intentional product misuse [Not Recovered/Not Resolved]
  - Road traffic accident [Unknown]
  - Foot fracture [Unknown]
  - Nervousness [Unknown]
  - Nausea [Not Recovered/Not Resolved]
  - Headache [Not Recovered/Not Resolved]
  - Drug ineffective [Not Recovered/Not Resolved]
  - Diabetes mellitus [Unknown]
  - Decreased appetite [Unknown]
  - Abdominal pain upper [Not Recovered/Not Resolved]
  - Loss of consciousness [Unknown]
  - Dyspepsia [Not Recovered/Not Resolved]
  - Back pain [Unknown]
  - Fatigue [Unknown]
  - Cerebral haemorrhage [Unknown]
  - Asthenia [Not Recovered/Not Resolved]
  - Weight decreased [Unknown]

NARRATIVE: CASE EVENT DATE: 2017
